FAERS Safety Report 9135106 (Version 2)
Quarter: 2013Q1

REPORT INFORMATION
  Report Type: Spontaneous
  Country: US (occurrence: US)
  Receive Date: 20130304
  Receipt Date: 20130313
  Transmission Date: 20140127
  Serious: Yes (Other)
  Sender: FDA-Public Use
  Company Number: US-PFIZER INC-2013073477

PATIENT
  Age: 41 Year
  Sex: Male
  Weight: 91 kg

DRUGS (7)
  1. LYRICA [Suspect]
     Indication: PERIPHERAL NERVE INJURY
     Dosage: UNK
     Route: 048
  2. LYRICA [Suspect]
     Dosage: 75 MG, 2X/DAY
     Route: 048
     Dates: start: 20130305
  3. MOTRIN [Concomitant]
     Indication: PAIN
     Dosage: 800 MG, DAILY
  4. XANAX [Concomitant]
     Indication: INSOMNIA
     Dosage: 1 MG, 1X/DAY
  5. XANAX [Concomitant]
     Indication: STRESS
  6. XANAX [Concomitant]
     Indication: ANXIETY
  7. INDOMETHACIN [Concomitant]
     Indication: NERVOUS SYSTEM DISORDER
     Dosage: 50 MG, DAILY

REACTIONS (5)
  - Peripheral nerve injury [Not Recovered/Not Resolved]
  - Condition aggravated [Not Recovered/Not Resolved]
  - Drug ineffective [Unknown]
  - Malaise [Unknown]
  - Somnolence [Unknown]
